FAERS Safety Report 21169948 (Version 1)
Quarter: 2022Q3

REPORT INFORMATION
  Report Type: Spontaneous
  Country: GB (occurrence: GB)
  Receive Date: 20220804
  Receipt Date: 20220804
  Transmission Date: 20221026
  Serious: No
  Sender: FDA-Public Use
  Company Number: None

PATIENT

DRUGS (2)
  1. PREGABALIN [Suspect]
     Active Substance: PREGABALIN
     Indication: Neuralgia
     Dosage: 75 MILLIGRAM, BID (75 MG TWICE DAILY THEN REDUCED TO 50MG TWICE DAILY)
     Route: 065
  2. PREGABALIN [Suspect]
     Active Substance: PREGABALIN
     Dosage: 50 MILLIGRAM, BID (75MG TWICE DAILY THEN REDUCED TO 50MG TWICE DAILY)
     Route: 065

REACTIONS (4)
  - Cognitive disorder [Recovering/Resolving]
  - Fatigue [Recovering/Resolving]
  - Memory impairment [Recovered/Resolved]
  - Somnolence [Recovering/Resolving]
